FAERS Safety Report 14239419 (Version 1)
Quarter: 2017Q4

REPORT INFORMATION
  Report Type: Spontaneous
  Country: US (occurrence: US)
  Receive Date: 20171127
  Receipt Date: 20171127
  Transmission Date: 20180321
  Serious: No
  Sender: FDA-Public Use
  Company Number: None

PATIENT
  Age: 32 Year
  Sex: Female

DRUGS (1)
  1. BUPRENORPHINE/NALOXONE [Suspect]
     Active Substance: BUPRENORPHINE\NALOXONE
     Indication: DRUG USE DISORDER
     Route: 048
     Dates: start: 20161217, end: 20170407

REACTIONS (5)
  - Scar [None]
  - Pruritus [None]
  - Scratch [None]
  - Rash pruritic [None]
  - Rash [None]

NARRATIVE: CASE EVENT DATE: 20170407
